FAERS Safety Report 4567276-1 (Version None)
Quarter: 2005Q1

REPORT INFORMATION
  Report Type: 
  Country: None (occurrence: None)
  Receive Date: 20050127
  Receipt Date: 20050117
  Transmission Date: 20050727
  Serious: Yes (Other)
  Sender: FDA-Public Use
  Company Number: 200510251BCC

PATIENT
  Sex: Female
  Weight: 90.7194 kg

DRUGS (2)
  1. ASPIRIN/CAFFEINE [Suspect]
     Indication: ARTHRITIS
     Dosage: 1000-2000 MG, PRN, ORAL
     Route: 048
  2. E.S. BAYER BACK + BODY PAIN [Suspect]

REACTIONS (1)
  - ARRHYTHMIA [None]
